FAERS Safety Report 17267331 (Version 6)
Quarter: 2020Q2

REPORT INFORMATION
  Report Type: Spontaneous
  Country: PT (occurrence: PT)
  Receive Date: 20200114
  Receipt Date: 20200603
  Transmission Date: 20200713
  Serious: Yes (Hospitalization, Other)
  Sender: FDA-Public Use
  Company Number: NVSC2020PT005026

PATIENT
  Age: 77 Year
  Sex: Female

DRUGS (1)
  1. AZITHROMYCIN ANHYDROUS. [Suspect]
     Active Substance: AZITHROMYCIN ANHYDROUS
     Indication: ODYNOPHAGIA
     Dosage: UNK
     Route: 065

REACTIONS (6)
  - Dermatitis bullous [Recovering/Resolving]
  - Erythema [Recovering/Resolving]
  - Genital ulceration [Recovered/Resolved]
  - Drug ineffective [Unknown]
  - Pemphigoid [Recovering/Resolving]
  - Pharyngeal ulceration [Not Recovered/Not Resolved]
